FAERS Safety Report 22274443 (Version 2)
Quarter: 2023Q2

REPORT INFORMATION
  Report Type: Report from Study
  Country: US (occurrence: US)
  Receive Date: 20230502
  Receipt Date: 20230606
  Transmission Date: 20230722
  Serious: Yes (Hospitalization, Other)
  Sender: FDA-Public Use
  Company Number: US-GILEAD-2023-0626517

PATIENT
  Age: 66 Year
  Sex: Female

DRUGS (1)
  1. IDELALISIB [Suspect]
     Active Substance: IDELALISIB
     Indication: Chronic lymphocytic leukaemia
     Dosage: 300 MG, BID
     Route: 048
     Dates: start: 202302, end: 20230427

REACTIONS (2)
  - COVID-19 [Unknown]
  - Pneumonia [Unknown]
